FAERS Safety Report 4683259-5 (Version None)
Quarter: 2005Q2

REPORT INFORMATION
  Report Type: 
  Country: None (occurrence: None)
  Receive Date: 20050602
  Receipt Date: 20050201
  Transmission Date: 20051028
  Serious: No
  Sender: FDA-Public Use
  Company Number: USA050289722

PATIENT
  Sex: Female

DRUGS (1)
  1. CYMBALTA [Suspect]
     Dosage: 120 MG DAY
     Dates: start: 20041001

REACTIONS (2)
  - AGGRESSION [None]
  - SEXUAL DYSFUNCTION [None]
